FAERS Safety Report 10243731 (Version 1)
Quarter: 2014Q2

REPORT INFORMATION
  Report Type: Spontaneous
  Country: US (occurrence: None)
  Receive Date: 20140616
  Receipt Date: 20140616
  Transmission Date: 20141212
  Serious: Yes (Hospitalization)
  Sender: FDA-Public Use
  Company Number: None

PATIENT
  Age: 67 Year
  Sex: Female

DRUGS (3)
  1. CARBOPLATIN [Suspect]
  2. TAXOL [Suspect]
  3. RIDAFOROLIMUS [Suspect]

REACTIONS (2)
  - Diarrhoea [None]
  - Platelet count decreased [None]
